FAERS Safety Report 15436769 (Version 1)
Quarter: 2018Q3

REPORT INFORMATION
  Report Type: Spontaneous
  Country: US (occurrence: US)
  Receive Date: 20180927
  Receipt Date: 20180927
  Transmission Date: 20181010
  Serious: No
  Sender: FDA-Public Use
  Company Number: US-MYLANLABS-2018M1066634

PATIENT
  Age: 37 Year
  Sex: Female
  Weight: 64 kg

DRUGS (1)
  1. FENTANYL TRANSDERMAL SYSTEM [Suspect]
     Active Substance: FENTANYL
     Indication: ARACHNOIDITIS
     Dosage: 1 UNK, UNK
     Route: 062
     Dates: start: 20180903

REACTIONS (4)
  - Drug tolerance [Not Recovered/Not Resolved]
  - Product quality issue [Unknown]
  - Drug ineffective for unapproved indication [Recovered/Resolved]
  - Product adhesion issue [Unknown]

NARRATIVE: CASE EVENT DATE: 201809
